FAERS Safety Report 10035146 (Version 1)
Quarter: 2014Q1

REPORT INFORMATION
  Report Type: Spontaneous
  Country: CA (occurrence: CA)
  Receive Date: 20140325
  Receipt Date: 20140325
  Transmission Date: 20141002
  Serious: Yes (Hospitalization)
  Sender: FDA-Public Use
  Company Number: CA-BAXTER-2014BAX013805

PATIENT
  Age: 54 Year
  Sex: Female

DRUGS (13)
  1. DIANEAL PD4 SOLUTION WITH 2.5% DEXTROSE AND 2.5 MEQ/L CALCIUM [Suspect]
     Indication: PERITONEAL DIALYSIS
     Route: 033
     Dates: start: 2009
  2. DIANEAL PD4 SOLUTION WITH 2.5% DEXTROSE AND 2.5 MEQ/L CALCIUM [Suspect]
     Indication: PERITONEAL DIALYSIS
  3. DIANEAL PD4 SOLUTION WITH 2.5% DEXTROSE AND 2.5 MEQ/L CALCIUM [Suspect]
     Indication: RENAL FAILURE
  4. EXTRANEAL [Suspect]
     Indication: PERITONEAL DIALYSIS
     Route: 033
     Dates: start: 2009
  5. EXTRANEAL [Suspect]
     Indication: PERITONEAL DIALYSIS
  6. EXTRANEAL [Suspect]
     Indication: RENAL FAILURE
  7. IRON [Concomitant]
     Indication: PRODUCT USED FOR UNKNOWN INDICATION
  8. RANITIDINE [Concomitant]
     Indication: PRODUCT USED FOR UNKNOWN INDICATION
  9. NPH [Concomitant]
     Indication: DIABETES MELLITUS MANAGEMENT
  10. LEVEMIR [Concomitant]
     Indication: DIABETES MELLITUS MANAGEMENT
  11. NOVORAPID [Concomitant]
     Indication: DIABETES MELLITUS MANAGEMENT
  12. NOVORAPID [Concomitant]
  13. NOVORAPID [Concomitant]

REACTIONS (4)
  - Fall [Recovered/Resolved]
  - Humerus fracture [Recovered/Resolved]
  - Femur fracture [Recovered/Resolved]
  - Blood glucose decreased [Recovered/Resolved]
